FAERS Safety Report 6911511-9 (Version None)
Quarter: 2010Q3

REPORT INFORMATION
  Report Type: 
  Country: None (occurrence: None)
  Receive Date: 20100806
  Receipt Date: 20100804
  Transmission Date: 20110219
  Serious: Yes (Life-Threatening)
  Sender: FDA-Public Use
  Company Number: IN-ABBOTT-10P-078-0637737-00

PATIENT
  Age: 28 Year
  Sex: Male

DRUGS (3)
  1. DEPAKOTE [Suspect]
     Indication: CONVULSION
     Route: 048
     Dates: start: 20100112, end: 20100318
  2. DEPAKOTE [Suspect]
     Indication: BIPOLAR DISORDER
  3. CARBAMAZEPINE [Concomitant]
     Indication: PRODUCT USED FOR UNKNOWN INDICATION

REACTIONS (4)
  - COORDINATION ABNORMAL [None]
  - HYPERAMMONAEMIA [None]
  - SALIVARY HYPERSECRETION [None]
  - SOMNOLENCE [None]
